FAERS Safety Report 19911834 (Version 1)
Quarter: 2021Q4

REPORT INFORMATION
  Report Type: Other
  Country: IT (occurrence: IT)
  Receive Date: 20211004
  Receipt Date: 20211004
  Transmission Date: 20220303
  Serious: Yes (Death, Hospitalization, Other)
  Sender: FDA-Public Use
  Company Number: IT-MACLEODS PHARMACEUTICALS US LTD-MAC2021032831

PATIENT

DRUGS (22)
  1. LEVOFLOXACIN [Suspect]
     Active Substance: LEVOFLOXACIN
     Indication: Product used for unknown indication
     Dosage: UNK
     Route: 065
  2. LEVOFLOXACIN [Suspect]
     Active Substance: LEVOFLOXACIN
     Indication: COVID-19
     Dosage: UNK
     Route: 065
  3. LEVOFLOXACIN [Suspect]
     Active Substance: LEVOFLOXACIN
     Indication: Off label use
  4. OMEPRAZOLE [Suspect]
     Active Substance: OMEPRAZOLE
     Indication: COVID-19
     Dosage: UNK
     Route: 065
  5. ACETAMINOPHEN [Suspect]
     Active Substance: ACETAMINOPHEN
     Indication: COVID-19
     Dosage: UNK
     Route: 065
  6. AZITHROMYCIN ANHYDROUS [Suspect]
     Active Substance: AZITHROMYCIN ANHYDROUS
     Indication: Product used for unknown indication
     Dosage: UNK
     Route: 065
  7. FLUCONAZOLE [Suspect]
     Active Substance: FLUCONAZOLE
     Indication: COVID-19
     Dosage: UNK
     Route: 065
  8. NOREPINEPHRINE [Suspect]
     Active Substance: NOREPINEPHRINE
     Indication: COVID-19
     Dosage: UNK
     Route: 065
  9. ROCURONIUM [Suspect]
     Active Substance: ROCURONIUM BROMIDE
     Indication: COVID-19
     Dosage: UNK
     Route: 065
  10. FUROSEMIDE [Suspect]
     Active Substance: FUROSEMIDE
     Indication: COVID-19
     Dosage: UNK
     Route: 065
  11. CHLORPHENIRAMINE MALEATE [Suspect]
     Active Substance: CHLORPHENIRAMINE MALEATE
     Indication: COVID-19
     Dosage: UNK
     Route: 065
  12. HYDROXYCHLOROQUINE [Suspect]
     Active Substance: HYDROXYCHLOROQUINE
     Indication: COVID-19
     Dosage: UNK
     Route: 065
  13. DAPTOMYCIN [Suspect]
     Active Substance: DAPTOMYCIN
     Indication: COVID-19
     Dosage: UNK
     Route: 065
  14. VANCOMYCIN [Suspect]
     Active Substance: VANCOMYCIN
     Indication: COVID-19
     Dosage: UNK
     Route: 065
  15. CLONAZEPAM [Suspect]
     Active Substance: CLONAZEPAM
     Indication: COVID-19
     Dosage: UNK
     Route: 065
  16. REMIFENTANIL [Suspect]
     Active Substance: REMIFENTANIL
     Indication: COVID-19
     Dosage: UNK
     Route: 065
  17. IOPAMIDOL [Suspect]
     Active Substance: IOPAMIDOL
     Indication: COVID-19
     Dosage: UNK
     Route: 065
  18. ENOXAPARIN [Suspect]
     Active Substance: ENOXAPARIN
     Indication: COVID-19
     Dosage: UNK
     Route: 065
  19. TIGECYCLINE [Suspect]
     Active Substance: TIGECYCLINE
     Indication: COVID-19
     Dosage: UNK
     Route: 065
  20. PROPOFOL [Suspect]
     Active Substance: PROPOFOL
     Indication: COVID-19
     Dosage: UNK
     Route: 065
  21. CANRENONE [Suspect]
     Active Substance: CANRENONE
     Indication: COVID-19
     Dosage: UNK
     Route: 065
  22. OXYGEN [Concomitant]
     Active Substance: OXYGEN
     Indication: Product used for unknown indication
     Dosage: UNK, NON INVASIVE MECHANICAL VENTILATION, INHALATION GAS
     Route: 065

REACTIONS (3)
  - Sepsis [Fatal]
  - Drug reaction with eosinophilia and systemic symptoms [Fatal]
  - Off label use [Unknown]
